FAERS Safety Report 4361157-4 (Version None)
Quarter: 2004Q2

REPORT INFORMATION
  Report Type: 
  Country: None (occurrence: None)
  Receive Date: 20040511
  Receipt Date: 20030730
  Transmission Date: 20050107
  Serious: Yes (Other)
  Sender: FDA-Public Use
  Company Number: 03-219-0747

PATIENT
  Age: 35 Year
  Sex: Male

DRUGS (3)
  1. KETOROLAC INJ, USP, 30MG/1ML, BEN VENUE LABS, INC. [Suspect]
     Indication: NEPHROLITHIASIS
     Dosage: 30 MG IV PUSH X 1
     Dates: start: 20030713
  2. PHENERGAN [Concomitant]
  3. SODIUM CHLORIDE [Concomitant]

REACTIONS (2)
  - VEIN DISORDER [None]
  - VEIN PAIN [None]
